FAERS Safety Report 14568997 (Version 1)
Quarter: 2018Q1

REPORT INFORMATION
  Report Type: Spontaneous
  Country: US (occurrence: US)
  Receive Date: 20180223
  Receipt Date: 20180223
  Transmission Date: 20180509
  Serious: Yes (Other)
  Sender: FDA-Public Use
  Company Number: US-NEPHRON STERILE COMPOUNDING CENTER-2042504

PATIENT

DRUGS (2)
  1. PHENYLEPHRINE HYDROCHLORIDE. [Suspect]
     Active Substance: PHENYLEPHRINE HYDROCHLORIDE
     Route: 042
  2. SUCCINYLCHOLINE CHLORIDE-PF INJECTION 20 MG/ML [Suspect]
     Active Substance: SUCCINYLCHOLINE CHLORIDE
     Indication: SURGERY
     Route: 042

REACTIONS (2)
  - Hypotension [Recovered/Resolved]
  - Medication error [Recovered/Resolved]
